FAERS Safety Report 5787212-X (Version None)
Quarter: 2008Q2

REPORT INFORMATION
  Report Type: 
  Country: None (occurrence: None)
  Receive Date: 20080625
  Receipt Date: 20070925
  Transmission Date: 20081010
  Serious: No
  Sender: FDA-Public Use
  Company Number: US-ASTRAZENECA-2007UW22455

PATIENT
  Age: 48 Year
  Sex: Female
  Weight: 93 kg

DRUGS (15)
  1. PULMICORT-100 [Suspect]
     Indication: ASTHMA
     Dosage: 3 P/AM- 2 P/PM
     Route: 055
     Dates: start: 20070801
  2. TRIAMTERENE AND HYDROCHLOROTHIAZIDE [Concomitant]
  3. ZOLOFT [Concomitant]
  4. DEXAMETHASONE NASAL SPRAY [Concomitant]
  5. NYSTATIN [Concomitant]
  6. SEREVENT [Concomitant]
  7. ALBUTEROL [Concomitant]
  8. ALLEGRA [Concomitant]
  9. ZYRTEC [Concomitant]
  10. PREDNISONE TAB [Concomitant]
  11. SINGULAIR [Concomitant]
  12. GUAIFENESIN PSE [Concomitant]
  13. PREVACID [Concomitant]
  14. CRESTOR [Concomitant]
     Route: 048
  15. ALLERGY SHOTS [Concomitant]

REACTIONS (2)
  - DRUG INEFFECTIVE [None]
  - HYPERSENSITIVITY [None]
